FAERS Safety Report 9961624 (Version 2)
Quarter: 2014Q1

REPORT INFORMATION
  Report Type: Report from Study
  Country: US (occurrence: US)
  Receive Date: 20140305
  Receipt Date: 20140305
  Transmission Date: 20141002
  Serious: Yes (Other)
  Sender: FDA-Public Use
  Company Number: US-ABBVIE-13P-163-1109473-00

PATIENT
  Sex: Male

DRUGS (11)
  1. HUMIRA [Suspect]
     Indication: RHEUMATOID ARTHRITIS
  2. HUMIRA [Suspect]
     Dosage: EVERY THREE WEEKS
     Dates: start: 201301
  3. FINASTERIDE [Concomitant]
     Indication: PROSTATIC DISORDER
  4. METOPROLOL [Concomitant]
     Indication: HEART RATE INCREASED
  5. SIMVASTATIN [Concomitant]
     Indication: BLOOD CHOLESTEROL
  6. ALFUZOSIN [Concomitant]
     Indication: PROSTATIC DISORDER
  7. ASA [Concomitant]
     Indication: CARDIAC DISORDER
  8. SULFASALAZINE [Concomitant]
     Indication: GASTRIC DISORDER
     Dosage: IN THE MORNING AND AT BEDTIME
  9. CELEBREX [Concomitant]
     Indication: INFLAMMATION
  10. PREDNISONE [Concomitant]
     Indication: PRODUCT USED FOR UNKNOWN INDICATION
     Dosage: TAPERING DOSE
  11. SPORANOX [Concomitant]
     Indication: PROPHYLAXIS

REACTIONS (2)
  - Respiratory tract infection fungal [Recovered/Resolved]
  - Drug administration error [Unknown]
